FAERS Safety Report 9116851 (Version 1)
Quarter: 2013Q1

REPORT INFORMATION
  Report Type: Spontaneous
  Country: CA (occurrence: CA)
  Receive Date: 20130225
  Receipt Date: 20130225
  Transmission Date: 20140127
  Serious: Yes (Hospitalization)
  Sender: FDA-Public Use
  Company Number: PHHY2013CA010870

PATIENT
  Sex: Male

DRUGS (1)
  1. SANDOSTATIN [Suspect]
     Indication: ACROMEGALY
     Dosage: 100 UG, TID
     Route: 058
     Dates: start: 20121215

REACTIONS (1)
  - Brain neoplasm [Unknown]
